FAERS Safety Report 5397973-X (Version None)
Quarter: 2007Q3

REPORT INFORMATION
  Report Type: 
  Country: None (occurrence: None)
  Receive Date: 20070726
  Receipt Date: 20070724
  Transmission Date: 20080115
  Serious: Yes (Life-Threatening)
  Sender: FDA-Public Use
  Company Number: HQWYE213224JUL07

PATIENT
  Age: 57 Year
  Sex: Female

DRUGS (6)
  1. PIPERACILLIN AND TAZOBACTAM [Suspect]
     Indication: BRONCHIECTASIS
     Route: 042
  2. PIPERACILLIN AND TAZOBACTAM [Suspect]
     Indication: INFECTION
  3. PROCATEROL HCL [Concomitant]
  4. AMLODIPINE [Concomitant]
  5. ROSIGLITAZONE [Concomitant]
  6. CALCIUM CITRATE [Concomitant]

REACTIONS (2)
  - GRAND MAL CONVULSION [None]
  - TOXIC ENCEPHALOPATHY [None]
